FAERS Safety Report 8586660 (Version 6)
Quarter: 2012Q4

REPORT INFORMATION
  Report Type: 
  Country: US (occurrence: US)
  Receive Date: 20120530
  Receipt Date: 20121119
  Transmission Date: 20130627
  Serious: Yes (Hospitalization, Disabling, Other)
  Sender: FDA-Public Use
  Company Number: US-009507513-1205USA04581

PATIENT

DRUGS (8)
  1. FOSAMAX [Suspect]
     Indication: OSTEOPENIA
     Dosage: 70 mg, qw
     Route: 048
     Dates: start: 1997, end: 20080420
  2. FOSAMAX [Suspect]
     Indication: OSTEOPOROSIS
  3. ALENDRONATE SODIUM [Suspect]
     Indication: OSTEOPENIA
     Dosage: 70 mg, qw
     Dates: start: 20080701
  4. ALENDRONATE SODIUM [Suspect]
     Indication: OSTEOPOROSIS
  5. VITAMINS (UNSPECIFIED) [Concomitant]
     Dosage: 1 DF, UNK
  6. ASCORBIC ACID [Concomitant]
     Dosage: 1000 mg, qd
  7. ALBUTEROL [Concomitant]
     Indication: ASTHMA
     Dosage: UNK
  8. PREMARIN [Concomitant]
     Indication: OSTEOPOROSIS

REACTIONS (59)
  - Femur fracture [Recovered/Resolved]
  - Femur fracture [Unknown]
  - Stress fracture [Unknown]
  - Open reduction of fracture [Unknown]
  - Finger amputation [Unknown]
  - Ulna fracture [Unknown]
  - Amputation [Unknown]
  - Hyponatraemia [Unknown]
  - Intervertebral disc degeneration [Unknown]
  - Leukocytosis [Recovering/Resolving]
  - Fall [Unknown]
  - Sciatica [Unknown]
  - Hip fracture [Unknown]
  - Pelvic fracture [Unknown]
  - Osteoporosis [Unknown]
  - Radius fracture [Unknown]
  - Lobar pneumonia [Recovering/Resolving]
  - Scoliosis [Unknown]
  - Post procedural haemorrhage [Recovering/Resolving]
  - Spinal fracture [Unknown]
  - Compression fracture [Unknown]
  - Haemorrhagic anaemia [Recovering/Resolving]
  - Hypertensive crisis [Recovered/Resolved]
  - Surgery [Unknown]
  - Hypokalaemia [Unknown]
  - Bone density decreased [Unknown]
  - Asthenia [Unknown]
  - Hypertension [Unknown]
  - Impaired healing [Not Recovered/Not Resolved]
  - Atrial fibrillation [Unknown]
  - Vertebroplasty [Unknown]
  - Foot fracture [Unknown]
  - Insomnia [Unknown]
  - Anxiety [Unknown]
  - Depression [Unknown]
  - Hypertonic bladder [Unknown]
  - Hypothyroidism [Unknown]
  - Hyperlipidaemia [Unknown]
  - Contusion [Unknown]
  - Cyst removal [Unknown]
  - Lumbar spinal stenosis [Unknown]
  - Neuropathy peripheral [Unknown]
  - Degeneration of uterine leiomyoma [Unknown]
  - Spinal claudication [Unknown]
  - Osteoarthritis [Unknown]
  - Muscular weakness [Unknown]
  - Pain [Unknown]
  - Inflammation [Unknown]
  - Pubis fracture [Unknown]
  - Periorbital haemorrhage [Unknown]
  - Aortic stenosis [Unknown]
  - Cardiac murmur [Unknown]
  - Confusional state [Recovered/Resolved]
  - Upper limb fracture [Unknown]
  - Road traffic accident [Unknown]
  - Osteoarthritis [Unknown]
  - Cervical polyp [Unknown]
  - Muscle spasms [Unknown]
  - Drug ineffective [Unknown]
